FAERS Safety Report 9501085 (Version 1)
Quarter: 2013Q1

REPORT INFORMATION
  Report Type: Spontaneous
  Country: US (occurrence: None)
  Receive Date: 20130118
  Receipt Date: 20130118
  Transmission Date: 20140127
  Serious: Yes (Hospitalization)
  Sender: FDA-Public Use
  Company Number: A-US2012-69559

PATIENT
  Age: 37 Year
  Sex: Female

DRUGS (3)
  1. TRACLEER [Suspect]
     Indication: PULMONARY ARTERIAL HYPERTENSION
     Route: 048
  2. ADCIRCA (TADALAFIL) [Concomitant]
  3. TYVASO (TREPROSTINIL SODIUM) [Concomitant]

REACTIONS (1)
  - Fluid overload [None]
